FAERS Safety Report 5061604-9 (Version None)
Quarter: 2006Q3

REPORT INFORMATION
  Report Type: 
  Country: None (occurrence: None)
  Receive Date: 20060721
  Receipt Date: 20060710
  Transmission Date: 20061208
  Serious: Yes (Other)
  Sender: FDA-Public Use
  Company Number: 2006-07-0957

PATIENT
  Age: 74 Year
  Sex: Male

DRUGS (2)
  1. CLARITIN-D [Suspect]
     Dosage: ORAL
     Route: 048
  2. UNKNOWN CAPSULES [Suspect]
     Indication: MYELODYSPLASTIC SYNDROME
     Dosage: 10 MG QD ORAL
     Route: 048
     Dates: start: 20060302

REACTIONS (1)
  - ARRHYTHMIA [None]
